FAERS Safety Report 18358969 (Version 1)
Quarter: 2020Q4

REPORT INFORMATION
  Report Type: Spontaneous
  Country: US (occurrence: US)
  Receive Date: 20201007
  Receipt Date: 20201007
  Transmission Date: 20210114
  Serious: Yes (Other)
  Sender: FDA-Public Use
  Company Number: None

PATIENT
  Age: 32 Year

DRUGS (2)
  1. BUPRENORPHINE HCL/ NALOXONE HCL SUB LING TAB [Suspect]
     Active Substance: BUPRENORPHINE HYDROCHLORIDE\NALOXONE HYDROCHLORIDE
     Indication: POISONING
  2. BUPRENORPHINE HCL/ NALOXONE HCL SUB LING TAB [Suspect]
     Active Substance: BUPRENORPHINE HYDROCHLORIDE\NALOXONE HYDROCHLORIDE
     Indication: DRUG DEPENDENCE

REACTIONS (1)
  - Palpitations [None]

NARRATIVE: CASE EVENT DATE: 20190606
